FAERS Safety Report 13869265 (Version 1)
Quarter: 2017Q3

REPORT INFORMATION
  Report Type: Report from Study
  Country: KR (occurrence: KR)
  Receive Date: 20170815
  Receipt Date: 20170815
  Transmission Date: 20171127
  Serious: Yes (Hospitalization)
  Sender: FDA-Public Use
  Company Number: KR-PFIZER INC-2017132435

PATIENT
  Age: 68 Year
  Sex: Female
  Weight: 61.3 kg

DRUGS (21)
  1. ASCORBIC ACID. [Concomitant]
     Active Substance: ASCORBIC ACID
     Indication: VITAMIN SUPPLEMENTATION
     Dosage: 100 MG, 1X/DAY
     Route: 042
     Dates: start: 20170316, end: 20170316
  2. SUSPEN ER [Concomitant]
     Indication: MYALGIA
     Dosage: 650 MG, 1X/DAY
     Route: 048
     Dates: start: 20170323, end: 20170323
  3. PACLITAXEL. [Suspect]
     Active Substance: PACLITAXEL
     Indication: OVARIAN CANCER
     Dosage: 287 MG, ON DAY 1, 3 WEEKS CYCLE
     Route: 042
     Dates: start: 20170322
  4. DUPHALAC EASY [Concomitant]
     Dosage: 15 ML, 3X/DAY
     Route: 048
     Dates: start: 20170323
  5. HEPARIN [Concomitant]
     Active Substance: HEPARIN SODIUM
     Indication: PROPHYLAXIS
     Dosage: 100 IU, 1X/DAY
     Route: 040
     Dates: start: 20170314, end: 20170314
  6. MAGNESIUM OXIDE. [Concomitant]
     Active Substance: MAGNESIUM OXIDE
     Dosage: 250 MG, 3X/DAY
     Route: 048
     Dates: start: 20170323
  7. CARBOPLATIN. [Suspect]
     Active Substance: CARBOPLATIN
     Indication: OVARIAN CANCER
     Dosage: 596.4 MG, ON DAY 1, 3 WEEKS CYCLE
     Route: 042
     Dates: start: 20170322
  8. BUSCOPAN [Concomitant]
     Active Substance: BUTYLSCOPOLAMINE BROMIDE
     Indication: GASTROINTESTINAL SOUNDS ABNORMAL
     Dosage: 10 MG, 1X/DAY
     Route: 048
     Dates: start: 20170314
  9. XANAX [Concomitant]
     Active Substance: ALPRAZOLAM
     Indication: ANXIETY
     Dosage: 0.25 MG, 3X/DAY
     Route: 048
     Dates: start: 20170314
  10. XANAX [Concomitant]
     Active Substance: ALPRAZOLAM
     Indication: INSOMNIA
  11. GLUCODOWN [Concomitant]
     Indication: DIABETES MELLITUS
     Dosage: 650 MG, 1X/DAY
     Route: 048
     Dates: start: 2001
  12. PRUCALOPRIDE SUCCINATE [Concomitant]
     Active Substance: PRUCALOPRIDE SUCCINATE
     Indication: CONSTIPATION
     Dosage: 1 MG, 1X/DAY
     Route: 048
     Dates: start: 20170324
  13. AVELUMAB [Suspect]
     Active Substance: AVELUMAB
     Indication: OVARIAN CANCER
     Dosage: 613 MG, ON DAY 1, 3 WEEKS CYCLE
     Route: 042
     Dates: start: 20170322
  14. CLINOLEIC [Concomitant]
     Active Substance: OLIVE OIL\SOYBEAN OIL
     Indication: NUTRITIONAL SUPPLEMENTATION
     Dosage: 250 ML, 1X/DAY
     Route: 042
     Dates: start: 20170314, end: 20170314
  15. MAGNESIUM OXIDE. [Concomitant]
     Active Substance: MAGNESIUM OXIDE
     Indication: CONSTIPATION
     Dosage: 250 MG, 3X/DAY
     Route: 048
     Dates: start: 20170316, end: 20170321
  16. TIROPA [Concomitant]
     Active Substance: TIROPRAMIDE
     Indication: GASTROINTESTINAL SOUNDS ABNORMAL
     Dosage: 30 MG, 1X/DAY
     Route: 040
     Dates: start: 20170228, end: 20170228
  17. BEECOM HEXA [Concomitant]
     Indication: VITAMIN SUPPLEMENTATION
     Dosage: 2 ML, 1X/DAY
     Route: 042
     Dates: start: 20170316, end: 20170316
  18. DUPHALAC EASY [Concomitant]
     Indication: CONSTIPATION
     Dosage: 15 ML, 3X/DAY
     Route: 048
     Dates: start: 20170316, end: 20170321
  19. TRIDOL [Concomitant]
     Active Substance: TRAMADOL HYDROCHLORIDE
     Indication: ABDOMINAL PAIN
     Dosage: 50 MG, 1X/DAY
     Route: 048
     Dates: start: 20170303
  20. CAFSOL [Concomitant]
     Indication: NUTRITIONAL SUPPLEMENTATION
     Dosage: 500 ML, 1X/DAY
     Route: 042
     Dates: start: 20170320, end: 20170322
  21. DENOGAN [Concomitant]
     Active Substance: PROPACETAMOL HYDROCHLORIDE
     Indication: MYALGIA
     Dosage: 1 G, 1X/DAY
     Route: 048
     Dates: start: 20170323, end: 20170323

REACTIONS (1)
  - Urinary tract infection [Recovered/Resolved]

NARRATIVE: CASE EVENT DATE: 20170324
